FAERS Safety Report 19003170 (Version 1)
Quarter: 2021Q1

REPORT INFORMATION
  Report Type: Spontaneous
  Country: US (occurrence: US)
  Receive Date: 20210312
  Receipt Date: 20210312
  Transmission Date: 20210420
  Serious: No
  Sender: FDA-Public Use
  Company Number: US-PFIZER INC-2021169613

PATIENT

DRUGS (1)
  1. CHANTIX [Suspect]
     Active Substance: VARENICLINE TARTRATE
     Dosage: UNK

REACTIONS (7)
  - Muscle spasms [Unknown]
  - Flatulence [Unknown]
  - Abnormal dreams [Unknown]
  - Nausea [Unknown]
  - Pain in extremity [Unknown]
  - Dysgeusia [Unknown]
  - Constipation [Unknown]
